FAERS Safety Report 10455095 (Version 2)
Quarter: 2014Q3

REPORT INFORMATION
  Report Type: Spontaneous
  Country: DE (occurrence: DE)
  Receive Date: 20140916
  Receipt Date: 20140916
  Transmission Date: 20150326
  Serious: Yes (Other)
  Sender: FDA-Public Use
  Company Number: DE-ROCHE-1420738

PATIENT
  Age: 69 Year
  Sex: Male
  Weight: 87 kg

DRUGS (9)
  1. DOXORUBICIN [Concomitant]
     Active Substance: DOXORUBICIN
     Indication: MANTLE CELL LYMPHOMA
     Route: 065
     Dates: start: 200812, end: 200903
  2. PREDNISOLON [Concomitant]
     Active Substance: PREDNISOLONE
     Indication: MANTLE CELL LYMPHOMA
     Route: 065
     Dates: start: 200812, end: 200903
  3. RITUXIMAB [Suspect]
     Active Substance: RITUXIMAB
     Dosage: 2 YEARS MAINTAINANCE
     Route: 042
     Dates: start: 20110516, end: 20131216
  4. RITUXIMAB [Suspect]
     Active Substance: RITUXIMAB
     Indication: MANTLE CELL LYMPHOMA
     Dosage: 5 CYCLES, 1ST LINE THERAPY R-CHOP REGIME
     Route: 042
     Dates: start: 200812, end: 200903
  5. RITUXIMAB [Suspect]
     Active Substance: RITUXIMAB
     Dosage: 6 CYCLES, 2ND LINE THERAPY, R-BENDA REGIME
     Route: 042
     Dates: start: 20110516, end: 201110
  6. RITUXIMAB [Suspect]
     Active Substance: RITUXIMAB
     Dosage: MAINTENANCE THERAPY
     Route: 042
     Dates: start: 201301, end: 201306
  7. CYCLOPHOSPHAMID [Concomitant]
     Active Substance: CYCLOPHOSPHAMIDE
     Indication: MANTLE CELL LYMPHOMA
     Route: 065
     Dates: start: 200812, end: 200903
  8. BENDAMUSTINA [Concomitant]
     Active Substance: BENDAMUSTINE
     Dosage: ON DAYS 1 AND 2 OF THE CYCLE
     Route: 042
     Dates: start: 20110517, end: 20111012
  9. VINCRISTIN [Concomitant]
     Active Substance: VINCRISTINE
     Indication: MANTLE CELL LYMPHOMA
     Route: 065
     Dates: start: 200812, end: 200903

REACTIONS (2)
  - Metastases to skin [Not Recovered/Not Resolved]
  - Mantle cell lymphoma [Unknown]

NARRATIVE: CASE EVENT DATE: 201105
